FAERS Safety Report 12340767 (Version 1)
Quarter: 2016Q2

REPORT INFORMATION
  Report Type: Spontaneous
  Country: US (occurrence: US)
  Receive Date: 20160506
  Receipt Date: 20160506
  Transmission Date: 20160815
  Serious: Yes (Other)
  Sender: FDA-Public Use
  Company Number: US-WATSON-2016-09401

PATIENT
  Age: 44 Year
  Sex: Male

DRUGS (3)
  1. HALOPERIDOL (WATSON LABORATORIES) [Suspect]
     Active Substance: HALOPERIDOL
     Indication: EPILEPSY
     Dosage: UNK
     Route: 065
  2. PHENYTOIN. [Concomitant]
     Active Substance: PHENYTOIN
     Indication: EPILEPSY
     Dosage: 700 MG, DAILY
     Route: 065
  3. PROMETHAZINE [Concomitant]
     Active Substance: PROMETHAZINE\PROMETHAZINE HYDROCHLORIDE
     Indication: EPILEPSY
     Dosage: 25 MG, UNKNOWN
     Route: 048

REACTIONS (1)
  - Catatonia [Recovered/Resolved]
